FAERS Safety Report 9050647 (Version 2)
Quarter: 2013Q2

REPORT INFORMATION
  Report Type: Spontaneous
  Country: US (occurrence: US)
  Receive Date: 20130205
  Receipt Date: 20130426
  Transmission Date: 20140414
  Serious: No
  Sender: FDA-Public Use
  Company Number: US-009507513-1302USA001111

PATIENT
  Sex: Male
  Weight: 72.56 kg

DRUGS (1)
  1. TEMODAR [Suspect]
     Indication: BRAIN CANCER METASTATIC
     Dosage: 20 MG, QD
     Route: 048
     Dates: start: 201301

REACTIONS (1)
  - Rash [Unknown]
